FAERS Safety Report 26086518 (Version 2)
Quarter: 2025Q4

REPORT INFORMATION
  Report Type: Report from Study
  Country: US (occurrence: US)
  Receive Date: 20251125
  Receipt Date: 20251204
  Transmission Date: 20260118
  Serious: Yes (Death)
  Sender: ALEXION PHARMACEUTICALS
  Company Number: US-AstraZeneca-CH-00998850A

PATIENT
  Age: 75 Year
  Sex: Male
  Weight: 51.25 kg

DRUGS (2)
  1. TRUQAP [Suspect]
     Active Substance: CAPIVASERTIB
     Indication: Prostate cancer
     Dosage: 400 MILLIGRAM, BID
     Dates: start: 202508
  2. TRUQAP [Suspect]
     Active Substance: CAPIVASERTIB
     Indication: Bone cancer

REACTIONS (1)
  - Death [Fatal]

NARRATIVE: CASE EVENT DATE: 20251113
